FAERS Safety Report 25712456 (Version 3)
Quarter: 2025Q3

REPORT INFORMATION
  Report Type: Spontaneous
  Country: US (occurrence: US)
  Receive Date: 20250821
  Receipt Date: 20250830
  Transmission Date: 20251020
  Serious: Yes (Other)
  Sender: SERVIER
  Company Number: US-SERVIER-S25011882

PATIENT

DRUGS (4)
  1. VORANIGO [Suspect]
     Active Substance: VORASIDENIB
     Indication: Glioma
     Dosage: 40 MG, QD
     Route: 048
     Dates: start: 20241001, end: 20250603
  2. LOMUSTINE [Suspect]
     Active Substance: LOMUSTINE
     Indication: Glioma
     Route: 065
     Dates: start: 20241226, end: 20250611
  3. NIVOLUMAB [Concomitant]
     Active Substance: NIVOLUMAB
     Indication: Glioma
     Route: 065
     Dates: start: 20240326, end: 20241126
  4. NELVUTAMIG [Concomitant]
     Active Substance: NELVUTAMIG
     Indication: Glioma
     Route: 065
     Dates: start: 20240326, end: 20241126

REACTIONS (5)
  - Malignant neoplasm progression [Unknown]
  - Alanine aminotransferase increased [Recovering/Resolving]
  - Aspartate aminotransferase increased [Recovered/Resolved]
  - Product use issue [Recovered/Resolved]
  - Product use issue [Recovered/Resolved]

NARRATIVE: CASE EVENT DATE: 20241001
